FAERS Safety Report 24565016 (Version 1)
Quarter: 2024Q4

REPORT INFORMATION
  Report Type: Spontaneous
  Country: US (occurrence: US)
  Receive Date: 20241030
  Receipt Date: 20241030
  Transmission Date: 20250115
  Serious: Yes (Other)
  Sender: GLENMARK
  Company Number: US-GLENMARK PHARMACEUTICALS-2024GMK094726

PATIENT

DRUGS (1)
  1. SIROLIMUS [Suspect]
     Active Substance: SIROLIMUS
     Indication: Juvenile xanthogranuloma
     Dosage: 1 MILLIGRAM PER SQUARE METRE, BID
     Route: 048

REACTIONS (3)
  - Hypertension neonatal [Unknown]
  - Hyperlipidaemia [Recovered/Resolved]
  - Drug effective for unapproved indication [Unknown]
